FAERS Safety Report 16543063 (Version 1)
Quarter: 2019Q3

REPORT INFORMATION
  Report Type: Spontaneous
  Country: US (occurrence: US)
  Receive Date: 20190709
  Receipt Date: 20190709
  Transmission Date: 20191004
  Serious: No
  Sender: FDA-Public Use
  Company Number: US-APOTEX-2019AP016791

PATIENT

DRUGS (1)
  1. KETOROLAC TROMETHAMINE. [Suspect]
     Active Substance: KETOROLAC TROMETHAMINE
     Indication: PRODUCT USED FOR UNKNOWN INDICATION
     Dosage: 1 GTT, Q.6H (1 DROP INTO THE AFFECTED EYE EVERY 6 HOURS)
     Route: 047

REACTIONS (4)
  - Vision blurred [Unknown]
  - Eye pain [Unknown]
  - Visual impairment [Not Recovered/Not Resolved]
  - Dry eye [Unknown]
